FAERS Safety Report 8776798 (Version 1)
Quarter: 2012Q4

REPORT INFORMATION
  Report Type: Report from Study
  Country: US (occurrence: US)
  Receive Date: 20120911
  Receipt Date: 20120911
  Transmission Date: 20130627
  Serious: Yes (Hospitalization)
  Sender: FDA-Public Use
  Company Number: US-JNJFOC-20120902999

PATIENT
  Sex: Male
  Weight: 123.83 kg

DRUGS (1)
  1. REMICADE [Suspect]
     Indication: RHEUMATOID ARTHRITIS
     Route: 042
     Dates: start: 2008

REACTIONS (3)
  - Prostatomegaly [Not Recovered/Not Resolved]
  - Cystitis [Not Recovered/Not Resolved]
  - Haemorrhage urinary tract [Recovered/Resolved]
